FAERS Safety Report 20482254 (Version 1)
Quarter: 2022Q1

REPORT INFORMATION
  Report Type: Report from Study
  Country: US (occurrence: US)
  Receive Date: 20220216
  Receipt Date: 20220216
  Transmission Date: 20220423
  Serious: Yes (Other)
  Sender: FDA-Public Use
  Company Number: US-ABBVIE-22K-163-4260828-00

PATIENT
  Sex: Female

DRUGS (1)
  1. IMBRUVICA [Suspect]
     Active Substance: IBRUTINIB
     Indication: Chronic lymphocytic leukaemia
     Route: 048
     Dates: start: 20220104

REACTIONS (10)
  - Chemotherapy [Unknown]
  - Neuralgia [Unknown]
  - Lip swelling [Unknown]
  - Tooth loss [Unknown]
  - Tooth fracture [Unknown]
  - Oral mucosal blistering [Unknown]
  - Bone pain [Unknown]
  - Headache [Unknown]
  - Pain [Unknown]
  - Frustration tolerance decreased [Unknown]

NARRATIVE: CASE EVENT DATE: 20220101
